FAERS Safety Report 21707742 (Version 1)
Quarter: 2022Q4

REPORT INFORMATION
  Report Type: Spontaneous
  Country: US (occurrence: US)
  Receive Date: 20221209
  Receipt Date: 20221209
  Transmission Date: 20230113
  Serious: Yes (Death, Other)
  Sender: FDA-Public Use
  Company Number: US-PFIZER INC-PV202200117191

PATIENT
  Age: 53 Year
  Sex: Male

DRUGS (16)
  1. BEVACIZUMAB [Suspect]
     Active Substance: BEVACIZUMAB
     Dosage: UNK, CYCLIC
     Dates: start: 20210419, end: 20210629
  2. BRAFTOVI [Suspect]
     Active Substance: ENCORAFENIB
     Dosage: UNK
  3. IRINOTECAN HYDROCHLORIDE [Suspect]
     Active Substance: IRINOTECAN HYDROCHLORIDE
     Dosage: 130 MG/M2
     Dates: start: 20210419, end: 20210629
  4. OXALIPLATIN [Suspect]
     Active Substance: OXALIPLATIN
     Dosage: 80 MG/M2
     Dates: start: 20210419, end: 20210629
  5. LONSURF [Suspect]
     Active Substance: TIPIRACIL HYDROCHLORIDE\TRIFLURIDINE
     Dosage: UNK
     Route: 048
     Dates: start: 202202
  6. PANITUMUMAB [Suspect]
     Active Substance: PANITUMUMAB
     Dosage: UNK
     Dates: start: 202108
  7. FLUOROURACIL [Suspect]
     Active Substance: FLUOROURACIL
     Dosage: UNK, CYCLIC
     Route: 048
     Dates: start: 20210419, end: 20210629
  8. LEUCOVORIN [Suspect]
     Active Substance: LEUCOVORIN
     Dosage: UNK
  9. BRAFTOVI [Concomitant]
     Active Substance: ENCORAFENIB
     Dosage: UNK
  10. EMLA [Concomitant]
     Active Substance: LIDOCAINE\PRILOCAINE
     Dosage: UNK
  11. POTASSIUM CHLORIDE [Concomitant]
     Active Substance: POTASSIUM CHLORIDE
     Dosage: UNK
  12. SODIUM CHLORIDE [Concomitant]
     Active Substance: SODIUM CHLORIDE
     Dosage: UNK
  13. LACTOBACILLUS RHAMNOSUS [Concomitant]
     Active Substance: LACTOBACILLUS RHAMNOSUS
     Dosage: UNK
  14. MAGNESIUM GLUCONATE [Concomitant]
     Active Substance: MAGNESIUM GLUCONATE
     Dosage: UNK
  15. ONDANSETRON HYDROCHLORIDE [Concomitant]
     Active Substance: ONDANSETRON HYDROCHLORIDE
     Dosage: UNK
  16. PROCHLORPERAZINE [Concomitant]
     Active Substance: PROCHLORPERAZINE
     Dosage: UNK

REACTIONS (7)
  - Neoplasm progression [Fatal]
  - Thrombocytopenia [Unknown]
  - Neutropenia [Unknown]
  - Fatigue [Unknown]
  - Diarrhoea [Unknown]
  - Full blood count abnormal [Unknown]
  - Blood magnesium decreased [Unknown]

NARRATIVE: CASE EVENT DATE: 20210101
